FAERS Safety Report 6819571-0 (Version None)
Quarter: 2010Q3

REPORT INFORMATION
  Report Type: 
  Country: None (occurrence: None)
  Receive Date: 20100701
  Receipt Date: 20090519
  Transmission Date: 20110219
  Serious: No
  Sender: FDA-Public Use
  Company Number: US-TEVA-195464USA

PATIENT
  Sex: Male

DRUGS (1)
  1. AZILECT [Suspect]
     Route: 048

REACTIONS (1)
  - NASOPHARYNGITIS [None]
